FAERS Safety Report 17031148 (Version 1)
Quarter: 2019Q4

REPORT INFORMATION
  Report Type: Spontaneous
  Country: US (occurrence: US)
  Receive Date: 20191011
  Receipt Date: 20191011
  Transmission Date: 20200122
  Serious: Yes (Hospitalization)
  Sender: FDA-Public Use
  Company Number: None

PATIENT
  Age: 73 Year
  Sex: Male
  Weight: 75 kg

DRUGS (2)
  1. TAXOTERE [Suspect]
     Active Substance: DOCETAXEL
     Dates: end: 20191003
  2. CARBOPLATIN (241240) [Suspect]
     Active Substance: CARBOPLATIN
     Dates: end: 20191003

REACTIONS (8)
  - Blood creatinine increased [None]
  - Nausea [None]
  - Blood urine present [None]
  - Oliguria [None]
  - Obstruction [None]
  - Flank pain [None]
  - Retching [None]
  - Dysuria [None]

NARRATIVE: CASE EVENT DATE: 20191009
